FAERS Safety Report 10274459 (Version 1)
Quarter: 2014Q3

REPORT INFORMATION
  Report Type: Spontaneous
  Country: US (occurrence: US)
  Receive Date: 20140702
  Receipt Date: 20140702
  Transmission Date: 20150326
  Serious: No
  Sender: FDA-Public Use
  Company Number: US-PFIZER INC-2014177581

PATIENT
  Sex: Female

DRUGS (1)
  1. EFFEXOR XR [Suspect]
     Active Substance: VENLAFAXINE HYDROCHLORIDE
     Indication: HOT FLUSH
     Dosage: 37.5 MG, UNK

REACTIONS (5)
  - Dizziness [Unknown]
  - Nausea [Unknown]
  - Drug ineffective for unapproved indication [Unknown]
  - Drug withdrawal syndrome [Unknown]
  - Weight increased [Unknown]
